FAERS Safety Report 4711099-7 (Version None)
Quarter: 2005Q3

REPORT INFORMATION
  Report Type: 
  Country: None (occurrence: None)
  Receive Date: 20050711
  Receipt Date: 20050628
  Transmission Date: 20060218
  Serious: Yes (Hospitalization)
  Sender: FDA-Public Use
  Company Number: 200511709EU

PATIENT
  Age: 68 Year
  Sex: Female
  Weight: 70 kg

DRUGS (5)
  1. SEGURIL [Suspect]
     Indication: ESSENTIAL HYPERTENSION
     Route: 048
     Dates: start: 20050322, end: 20050405
  2. PHENYTOIN [Suspect]
     Indication: EPILEPSY
     Route: 048
     Dates: start: 20050315, end: 20050405
  3. TENORMIN [Suspect]
     Indication: ESSENTIAL HYPERTENSION
     Route: 048
     Dates: start: 20050225, end: 20050405
  4. DEXAMETHASONE [Concomitant]
     Indication: BRAIN NEOPLASM
     Route: 048
     Dates: start: 20050315
  5. OMEPRAZOLE [Concomitant]
     Indication: PROPHYLAXIS AGAINST GASTROINTESTINAL ULCER
     Route: 048
     Dates: start: 20050225

REACTIONS (2)
  - PNEUMONITIS [None]
  - RASH ERYTHEMATOUS [None]
